FAERS Safety Report 5226377-5 (Version None)
Quarter: 2007Q1

REPORT INFORMATION
  Report Type: 
  Country: None (occurrence: None)
  Receive Date: 20070201
  Receipt Date: 20070124
  Transmission Date: 20070707
  Serious: Yes (Hospitalization, Congenital Anomaly, Other)
  Sender: FDA-Public Use
  Company Number: US-JNJFOC-20070107692

PATIENT
  Sex: Male
  Weight: 3.18 kg

DRUGS (1)
  1. ORTHO TRI-CYCLEN [Suspect]
     Indication: DRUG EXPOSURE DURING PREGNANCY

REACTIONS (2)
  - BRADYCARDIA NEONATAL [None]
  - NEONATAL ASPIRATION [None]
